FAERS Safety Report 16220975 (Version 2)
Quarter: 2019Q2

REPORT INFORMATION
  Report Type: Report from Study
  Country: None (occurrence: US)
  Receive Date: 20190421
  Receipt Date: 20190618
  Transmission Date: 20190711
  Serious: Yes (Hospitalization, Other)
  Sender: FDA-Public Use
  Company Number: US-ABBVIE-19K-163-2746719-00

PATIENT
  Sex: Male
  Weight: 83.54 kg

DRUGS (2)
  1. HUMIRA [Suspect]
     Active Substance: ADALIMUMAB
     Route: 058
     Dates: start: 201903
  2. HUMIRA [Suspect]
     Active Substance: ADALIMUMAB
     Indication: CROHN^S DISEASE
     Route: 058
     Dates: start: 20190301, end: 201903

REACTIONS (4)
  - Gastrointestinal inflammation [Unknown]
  - Hospitalisation [Unknown]
  - Post procedural infection [Unknown]
  - Anastomotic leak [Recovered/Resolved]

NARRATIVE: CASE EVENT DATE: 2019
